FAERS Safety Report 25073585 (Version 3)
Quarter: 2025Q1

REPORT INFORMATION
  Report Type: Report from Study
  Country: US (occurrence: US)
  Receive Date: 20250313
  Receipt Date: 20250319
  Transmission Date: 20250408
  Serious: Yes (Other)
  Sender: JAZZ
  Company Number: US-JAZZ PHARMACEUTICALS-2025-US-003931

PATIENT
  Sex: Female

DRUGS (7)
  1. XYREM [Suspect]
     Active Substance: SODIUM OXYBATE
     Indication: Narcolepsy
  2. XYREM [Suspect]
     Active Substance: SODIUM OXYBATE
     Indication: Cataplexy
  3. XYREM [Suspect]
     Active Substance: SODIUM OXYBATE
     Indication: Somnolence
  4. XYREM [Suspect]
     Active Substance: SODIUM OXYBATE
     Indication: Insomnia
  5. CETIRIZINE HCL [Concomitant]
     Active Substance: CETIRIZINE HYDROCHLORIDE
     Indication: Product used for unknown indication
     Dates: start: 20180803
  6. CLONAZEPAM [Concomitant]
     Active Substance: CLONAZEPAM
     Indication: Product used for unknown indication
     Dates: start: 20230423
  7. GABAPENTIN [Concomitant]
     Active Substance: GABAPENTIN
     Indication: Product used for unknown indication
     Dates: start: 20240808

REACTIONS (6)
  - Mast cell activation syndrome [Unknown]
  - Medical procedure [Unknown]
  - Illness [Unknown]
  - Eczema [Unknown]
  - Off label use [Unknown]
  - Product administration interrupted [Unknown]
